FAERS Safety Report 20746044 (Version 4)
Quarter: 2022Q4

REPORT INFORMATION
  Report Type: Report from Study
  Country: JP (occurrence: JP)
  Receive Date: 20220425
  Receipt Date: 20221006
  Transmission Date: 20230112
  Serious: No
  Sender: FDA-Public Use
  Company Number: JP-MSD-2204JPN002130J

PATIENT
  Age: 63 Year
  Sex: Female
  Weight: 77 kg

DRUGS (8)
  1. MOLNUPIRAVIR [Suspect]
     Active Substance: MOLNUPIRAVIR
     Indication: COVID-19 treatment
     Dosage: 800 MILLIGRAM, BID
     Route: 048
     Dates: start: 20220210, end: 20220214
  2. AZITHROMYCIN DIHYDRATE [Concomitant]
     Active Substance: AZITHROMYCIN DIHYDRATE
     Indication: COVID-19 treatment
     Dosage: UNK
     Route: 065
     Dates: start: 202202, end: 202202
  3. NEXIUM [Concomitant]
     Active Substance: ESOMEPRAZOLE MAGNESIUM
     Indication: COVID-19 treatment
     Dosage: UNK
     Route: 065
     Dates: start: 202202, end: 202202
  4. AMBROXOL HYDROCHLORIDE [Concomitant]
     Active Substance: AMBROXOL HYDROCHLORIDE
     Indication: COVID-19 treatment
     Dosage: UNK
     Route: 065
     Dates: start: 202202, end: 2022
  5. ELIQUIS [Concomitant]
     Active Substance: APIXABAN
     Indication: COVID-19 treatment
     Dosage: UNK
     Route: 065
     Dates: start: 202202, end: 202202
  6. CALONAL [Concomitant]
     Active Substance: ACETAMINOPHEN
     Indication: COVID-19 treatment
     Dosage: UNK
     Route: 065
     Dates: start: 202202, end: 202202
  7. URSO [Concomitant]
     Active Substance: URSODIOL
     Indication: COVID-19 treatment
     Dosage: UNK
     Route: 065
     Dates: start: 202202, end: 202202
  8. MIYA-BM [Concomitant]
     Active Substance: CLOSTRIDIUM BUTYRICUM SPORES STRAIN M-55
     Indication: COVID-19
     Dosage: UNK
     Route: 065
     Dates: start: 202202, end: 202202

REACTIONS (3)
  - Product use issue [Unknown]
  - Product use in unapproved indication [Unknown]
  - No adverse event [Unknown]

NARRATIVE: CASE EVENT DATE: 20220210
